FAERS Safety Report 19905073 (Version 1)
Quarter: 2021Q3

REPORT INFORMATION
  Report Type: Spontaneous
  Country: US (occurrence: US)
  Receive Date: 20210930
  Receipt Date: 20210930
  Transmission Date: 20211014
  Serious: Yes (Hospitalization)
  Sender: FDA-Public Use
  Company Number: None

PATIENT
  Age: 37 Year
  Sex: Male
  Weight: 105.75 kg

DRUGS (5)
  1. REGEN?COV [Suspect]
     Active Substance: CASIRIVIMAB\IMDEVIMAB
     Indication: SARS-COV-2 TEST POSITIVE
     Route: 042
     Dates: start: 20210929, end: 20210929
  2. BENZONATATE. [Concomitant]
     Active Substance: BENZONATATE
     Dates: start: 20210927, end: 20210929
  3. DEXAMETHASONE. [Concomitant]
     Active Substance: DEXAMETHASONE
     Dates: start: 20210927, end: 20210929
  4. ALBUTEROL. [Concomitant]
     Active Substance: ALBUTEROL
     Dates: start: 20210927, end: 20210929
  5. AZITHROMYCIN ANHYDROUS. [Concomitant]
     Active Substance: AZITHROMYCIN ANHYDROUS
     Dates: start: 20210927, end: 20210929

REACTIONS (6)
  - Hypoxia [None]
  - Pneumonia [None]
  - Tachypnoea [None]
  - Tachycardia [None]
  - Pulmonary embolism [None]
  - Pyrexia [None]

NARRATIVE: CASE EVENT DATE: 20210929
